FAERS Safety Report 12091199 (Version 1)
Quarter: 2016Q1

REPORT INFORMATION
  Report Type: Spontaneous
  Country: JP (occurrence: JP)
  Receive Date: 20160218
  Receipt Date: 20160218
  Transmission Date: 20160526
  Serious: Yes (Other)
  Sender: FDA-Public Use
  Company Number: JP-009507513-1602JPN007631

PATIENT
  Sex: Female

DRUGS (4)
  1. NATRIX [Concomitant]
     Active Substance: INDAPAMIDE
     Route: 048
  2. NU-LOTAN TABLET 50 [Suspect]
     Active Substance: LOSARTAN
     Dosage: DAILY DOSE UNKNOWN
     Route: 048
  3. NU-LOTAN TABLET 50 [Suspect]
     Active Substance: LOSARTAN
     Dosage: 25 MG, BID
     Route: 048
  4. AVAPRO [Concomitant]
     Active Substance: IRBESARTAN
     Indication: HYPERTENSION
     Dosage: DAILY DOSE UNKNOWN
     Route: 065

REACTIONS (6)
  - Abnormal sensation in eye [Unknown]
  - Dizziness [Unknown]
  - Inappropriate schedule of drug administration [Unknown]
  - Erythema [Unknown]
  - Hypoacusis [Unknown]
  - Tinnitus [Unknown]
